FAERS Safety Report 5639248-7 (Version None)
Quarter: 2008Q1

REPORT INFORMATION
  Report Type: 
  Country: None (occurrence: None)
  Receive Date: 20080226
  Receipt Date: 20080215
  Transmission Date: 20080703
  Serious: Yes (Other)
  Sender: FDA-Public Use
  Company Number: GB-LILLY DEUTSCHLAND GMBH-GB200704004774

PATIENT
  Sex: Female

DRUGS (4)
  1. HUMULIN N [Suspect]
     Indication: DIABETES MELLITUS
     Dosage: 32 IU, EACH EVENING
     Route: 065
     Dates: start: 20070401, end: 20070401
  2. HUMULIN R [Suspect]
     Indication: DIABETES MELLITUS
     Dosage: 24 U, THREE TIMES DAILY
     Route: 065
     Dates: start: 20070401, end: 20070401
  3. NOVORAPID [Concomitant]
     Indication: DIABETES MELLITUS
     Dosage: UNK, UNKNOWN
     Route: 065
  4. LEVEMIR [Concomitant]
     Indication: DIABETES MELLITUS
     Dosage: UNK, UNKNOWN
     Route: 065

REACTIONS (4)
  - ABORTION SPONTANEOUS [None]
  - DRUG EXPOSURE DURING PREGNANCY [None]
  - INJURY [None]
  - MALAISE [None]
